FAERS Safety Report 6703043-8 (Version None)
Quarter: 2010Q2

REPORT INFORMATION
  Report Type: 
  Country: None (occurrence: None)
  Receive Date: 20100427
  Receipt Date: 20100414
  Transmission Date: 20101027
  Serious: Yes (Other)
  Sender: FDA-Public Use
  Company Number: WAES 0903USA00313

PATIENT
  Age: 73 Year
  Sex: Male
  Weight: 92.5338 kg

DRUGS (13)
  1. ZOCOR [Suspect]
     Indication: ACUTE CORONARY SYNDROME
     Dosage: 40 MG/DAILY/PO
     Route: 048
     Dates: start: 20070322
  2. TAB PLACEBO (UNSPECIFIED) UNK [Suspect]
     Indication: ACUTE CORONARY SYNDROME
     Dosage: PO
     Route: 048
     Dates: start: 20070322
  3. COREG [Concomitant]
  4. METAMUCIL-2 [Concomitant]
  5. PRILOSEC [Concomitant]
  6. TYLENOL (CAPLET) [Concomitant]
  7. ALPRAZOLAM [Concomitant]
  8. CALCIUM (UNSPECIFIED (+) MAGNES [Concomitant]
  9. FUROSEMIDE [Concomitant]
  10. ISOSORBIDE [Concomitant]
  11. LISINOPRIL [Concomitant]
  12. NITROGLYCERIN [Concomitant]
  13. POTASSIUM (UNSPECIFIED) [Concomitant]

REACTIONS (4)
  - COLON ADENOMA [None]
  - CYST [None]
  - LIPOMA [None]
  - SKIN CANCER [None]
